FAERS Safety Report 4706345-X (Version None)
Quarter: 2005Q2

REPORT INFORMATION
  Report Type: 
  Country: None (occurrence: None)
  Receive Date: 20050629
  Receipt Date: 20050620
  Transmission Date: 20051028
  Serious: Yes (Other)
  Sender: FDA-Public Use
  Company Number: S05-USA-03220-01

PATIENT
  Sex: Male

DRUGS (3)
  1. NAMENDA [Suspect]
  2. KLONOPIN [Concomitant]
  3. ANTIPSYCHOTIC (NOS) [Concomitant]

REACTIONS (2)
  - MANIA [None]
  - MOOD SWINGS [None]
